FAERS Safety Report 4623926-2 (Version None)
Quarter: 2005Q1

REPORT INFORMATION
  Report Type: 
  Country: None (occurrence: None)
  Receive Date: 20050331
  Receipt Date: 20050302
  Transmission Date: 20050727
  Serious: Yes (Life-Threatening)
  Sender: FDA-Public Use
  Company Number: JP-ROCHE-397548

PATIENT
  Age: 83 Year
  Sex: Female

DRUGS (4)
  1. TAMIFLU [Suspect]
     Indication: INFLUENZA
     Route: 048
     Dates: start: 20050221, end: 20050225
  2. BAREON [Suspect]
     Indication: PNEUMONIA
     Route: 048
     Dates: start: 20050219, end: 20050220
  3. BAREON [Suspect]
     Route: 048
     Dates: start: 20050226
  4. HALCION [Concomitant]
     Indication: DRUG USE FOR UNKNOWN INDICATION
     Route: 048

REACTIONS (7)
  - EPISTAXIS [None]
  - HAEMATURIA [None]
  - HAEMORRHAGE [None]
  - MOUTH HAEMORRHAGE [None]
  - PLATELET COUNT DECREASED [None]
  - PURPURA [None]
  - VIRAL INFECTION [None]
